FAERS Safety Report 14146738 (Version 1)
Quarter: 2017Q4

REPORT INFORMATION
  Report Type: Spontaneous
  Country: FR (occurrence: FR)
  Receive Date: 20171031
  Receipt Date: 20171031
  Transmission Date: 20180321
  Serious: Yes (Other)
  Sender: FDA-Public Use
  Company Number: FR-MERCK KGAA-2032908

PATIENT
  Age: 61 Year
  Sex: Female

DRUGS (10)
  1. PARACETAMOL [Concomitant]
     Active Substance: ACETAMINOPHEN
  2. TRANSULOSE (LACTULOSE, PARAFFIN, LIQUID, WHITE SOFT PARAFFIN) [Concomitant]
  3. THIOCOLCHICOSIDE [Concomitant]
     Active Substance: THIOCOLCHICOSIDE
  4. LEVOTHYROX [Suspect]
     Active Substance: LEVOTHYROXINE
     Route: 048
     Dates: start: 20170701, end: 20170916
  5. ALIMEMAZINE [Concomitant]
     Active Substance: TRIMEPRAZINE
  6. IBUPROFEN. [Concomitant]
     Active Substance: IBUPROFEN
  7. PAROXETINE. [Concomitant]
     Active Substance: PAROXETINE
  8. LOPRAZOLAM [Concomitant]
     Active Substance: LOPRAZOLAM
  9. LORAZEPAM. [Concomitant]
     Active Substance: LORAZEPAM
  10. NOVOTHYROX [Suspect]
     Active Substance: LEVOTHYROXINE SODIUM
     Indication: HYPOTHYROIDISM
     Route: 048
     Dates: start: 20170701, end: 20170916

REACTIONS (13)
  - Fatigue [Not Recovered/Not Resolved]
  - Suicide attempt [Unknown]
  - Abdominal pain [Not Recovered/Not Resolved]
  - Dizziness [Not Recovered/Not Resolved]
  - Decreased appetite [Not Recovered/Not Resolved]
  - Irritability [Not Recovered/Not Resolved]
  - Depression [Not Recovered/Not Resolved]
  - Constipation [Not Recovered/Not Resolved]
  - Suicidal ideation [Not Recovered/Not Resolved]
  - Arthralgia [Not Recovered/Not Resolved]
  - Nervousness [Not Recovered/Not Resolved]
  - Weight decreased [Not Recovered/Not Resolved]
  - Insomnia [Not Recovered/Not Resolved]

NARRATIVE: CASE EVENT DATE: 20170729
